FAERS Safety Report 18292664 (Version 1)
Quarter: 2020Q3

REPORT INFORMATION
  Report Type: Spontaneous
  Country: CN (occurrence: CN)
  Receive Date: 20200921
  Receipt Date: 20200921
  Transmission Date: 20201103
  Serious: Yes (Other)
  Sender: FDA-Public Use
  Company Number: CN-ELI_LILLY_AND_COMPANY-CN202009004534

PATIENT
  Age: 62 Year
  Sex: Male

DRUGS (11)
  1. CISPLATIN. [Concomitant]
     Active Substance: CISPLATIN
     Dosage: UNK
  2. TISLELIZUMAB [Concomitant]
     Active Substance: TISLELIZUMAB
     Indication: TRANSITIONAL CELL CARCINOMA
     Dosage: UNK, UNKNOWN
     Route: 065
     Dates: start: 20200520
  3. CISPLATIN. [Concomitant]
     Active Substance: CISPLATIN
     Dosage: 45 MG, CYCLICAL
     Route: 065
     Dates: start: 20191120
  4. CISPLATIN. [Concomitant]
     Active Substance: CISPLATIN
     Dosage: 40 MG, CYCLICAL
     Route: 065
     Dates: start: 20200520
  5. GEMZAR [Suspect]
     Active Substance: GEMCITABINE HYDROCHLORIDE
     Indication: TRANSITIONAL CELL CARCINOMA
     Dosage: UNK, UNKNOWN
     Route: 065
     Dates: start: 2018
  6. GEMZAR [Suspect]
     Active Substance: GEMCITABINE HYDROCHLORIDE
     Dosage: 1.6 G, CYCLICAL
     Route: 042
     Dates: start: 20200715, end: 20200715
  7. NEDAPLATIN [Concomitant]
     Active Substance: NEDAPLATIN
     Indication: TRANSITIONAL CELL CARCINOMA
     Dosage: 70 MG, CYCLICAL
     Route: 065
     Dates: start: 20200715
  8. GEMZAR [Suspect]
     Active Substance: GEMCITABINE HYDROCHLORIDE
     Dosage: 1.5 G, CYCLICAL
     Route: 065
     Dates: start: 20200520
  9. GEMZAR [Suspect]
     Active Substance: GEMCITABINE HYDROCHLORIDE
     Dosage: 1.95 G, CYCLICAL
     Route: 065
     Dates: start: 20191120
  10. CISPLATIN. [Concomitant]
     Active Substance: CISPLATIN
     Indication: TRANSITIONAL CELL CARCINOMA
     Dosage: UNK, UNKNOWN
     Route: 065
     Dates: start: 2018
  11. CISPLATIN. [Concomitant]
     Active Substance: CISPLATIN
     Dosage: 30 MG, CYCLICAL
     Route: 065
     Dates: start: 20200520

REACTIONS (6)
  - Malignant neoplasm progression [Unknown]
  - Therapy partial responder [Unknown]
  - Urinary incontinence [Recovering/Resolving]
  - Abdominal pain lower [Unknown]
  - Off label use [Unknown]
  - Gastrointestinal disorder [Unknown]

NARRATIVE: CASE EVENT DATE: 20200715
